FAERS Safety Report 25514995 (Version 1)
Quarter: 2025Q3

REPORT INFORMATION
  Report Type: Spontaneous
  Country: US (occurrence: US)
  Receive Date: 20250703
  Receipt Date: 20250703
  Transmission Date: 20251021
  Serious: No
  Sender: RADIUS PHARM
  Company Number: US-RADIUS HEALTH INC.-US-RADIUS-25047617

PATIENT
  Age: 64 Year
  Sex: Female

DRUGS (5)
  1. TYMLOS [Suspect]
     Active Substance: ABALOPARATIDE
     Indication: Essential thrombocythaemia
     Dosage: 80 MICROGRAM, QD, IN THE MORNING
     Route: 058
     Dates: start: 202504
  2. TYMLOS [Suspect]
     Active Substance: ABALOPARATIDE
     Indication: Senile osteoporosis
  3. TYMLOS [Suspect]
     Active Substance: ABALOPARATIDE
     Indication: Pathological fracture
  4. MIRALAX [Concomitant]
     Active Substance: POLYETHYLENE GLYCOL 3350
     Indication: Product used for unknown indication
  5. GAS-X WITH MAALOX [CALCIUM CARBONATE;SIMETICONE] [Concomitant]
     Indication: Product used for unknown indication

REACTIONS (6)
  - Joint swelling [Unknown]
  - Peripheral swelling [Unknown]
  - Feeling abnormal [Unknown]
  - Pain in extremity [Unknown]
  - Bone pain [Unknown]
  - Injection site erythema [Unknown]

NARRATIVE: CASE EVENT DATE: 20250401
